FAERS Safety Report 18325991 (Version 1)
Quarter: 2020Q3

REPORT INFORMATION
  Report Type: Report from Study
  Country: CO (occurrence: CO)
  Receive Date: 20200929
  Receipt Date: 20200929
  Transmission Date: 20201103
  Serious: Yes (Other)
  Sender: FDA-Public Use
  Company Number: NVSC2020CO241472

PATIENT
  Sex: Female
  Weight: 72 kg

DRUGS (3)
  1. REVOLADE [Suspect]
     Active Substance: ELTROMBOPAG
     Dosage: 50 MG (APPROX 4 YEARS AGO)
     Route: 048
  2. REVOLADE [Suspect]
     Active Substance: ELTROMBOPAG
     Indication: IMMUNE THROMBOCYTOPENIA
     Dosage: 75 MG, QD
     Route: 048
     Dates: start: 20170301
  3. REVOLADE [Suspect]
     Active Substance: ELTROMBOPAG
     Dosage: 75 MG (3 OF 25 MG) (IN MORNING)
     Route: 048

REACTIONS (8)
  - Anosmia [Unknown]
  - Headache [Unknown]
  - Pain [Unknown]
  - Ageusia [Unknown]
  - Drug ineffective [Unknown]
  - Psychiatric symptom [Unknown]
  - Influenza [Unknown]
  - Alopecia [Not Recovered/Not Resolved]
